FAERS Safety Report 7978630-X (Version None)
Quarter: 2011Q4

REPORT INFORMATION
  Report Type: 
  Country: None (occurrence: None)
  Receive Date: 20111214
  Receipt Date: 20111206
  Transmission Date: 20120403
  Serious: Yes (Hospitalization, Other)
  Sender: FDA-Public Use
  Company Number: JP-GENZYME-THYM-1002966

PATIENT
  Age: 6 Year
  Sex: Male
  Weight: 23 kg

DRUGS (12)
  1. THYMOGLOBULIN [Suspect]
     Indication: BONE MARROW CONDITIONING REGIMEN
     Dosage: 30 MG, QD
     Route: 042
     Dates: start: 20110519, end: 20110522
  2. CYCLOPHOSPHAMIDE [Concomitant]
     Indication: MYELODYSPLASTIC SYNDROME
     Dosage: UNK
     Dates: start: 20110519, end: 20110522
  3. GANCICLOVIR [Concomitant]
     Indication: INFECTION PROPHYLAXIS
     Dosage: UNK
     Dates: start: 20110815, end: 20110916
  4. PREDNISOLONE [Concomitant]
     Indication: PREMEDICATION
     Dosage: UNK
     Dates: start: 20110530, end: 20110604
  5. TACROLIMUS [Concomitant]
     Indication: PROPHYLAXIS AGAINST GRAFT VERSUS HOST DISEASE
     Dosage: UNK
     Dates: start: 20110523
  6. MICAFUNGIN SODIUM [Concomitant]
     Indication: INFECTION PROPHYLAXIS
     Dosage: UNK
     Dates: start: 20110606, end: 20110607
  7. METHYLPREDNISOLONE [Concomitant]
     Indication: PREMEDICATION
     Dosage: UNK
     Dates: start: 20110519, end: 20110529
  8. PH4 TREATED ACIDIC HUMAN NORMAL IMMUNOGLOBULIN [Concomitant]
     Indication: INFECTION PROPHYLAXIS
     Dosage: UNK
     Dates: start: 20110525, end: 20111101
  9. FLUDARABINE PHOSPHATE [Concomitant]
     Indication: MYELODYSPLASTIC SYNDROME
     Dosage: UNK
     Dates: start: 20110519, end: 20110522
  10. PREDNISOLONE [Concomitant]
     Dosage: UNK
     Dates: start: 20110605, end: 20110610
  11. MEROPENEM [Concomitant]
     Indication: INFECTION PROPHYLAXIS
     Dosage: UNK
     Dates: start: 20110517, end: 20110608
  12. LENOGRASTIM [Concomitant]
     Indication: MYELODYSPLASTIC SYNDROME
     Dosage: UNK
     Dates: start: 20110525, end: 20110613

REACTIONS (6)
  - SEPSIS [None]
  - CYTOMEGALOVIRUS INFECTION [None]
  - INFECTION [None]
  - EPSTEIN-BARR VIRUS INFECTION [None]
  - GRAFT VERSUS HOST DISEASE IN SKIN [None]
  - THROMBIN-ANTITHROMBIN III COMPLEX ABNORMAL [None]
